FAERS Safety Report 9905071 (Version 1)
Quarter: 2014Q1

REPORT INFORMATION
  Report Type: Spontaneous
  Country: US (occurrence: None)
  Receive Date: 20140212
  Receipt Date: 20140212
  Transmission Date: 20141002
  Serious: Yes (Disabling)
  Sender: FDA-Public Use
  Company Number: None

PATIENT
  Age: 55 Year
  Sex: Female
  Weight: 89.81 kg

DRUGS (1)
  1. PROLIA [Suspect]

REACTIONS (10)
  - Pyrexia [None]
  - Rash generalised [None]
  - Dyspnoea [None]
  - Swelling face [None]
  - Insomnia [None]
  - Erythema [None]
  - Neck pain [None]
  - Eye pain [None]
  - Unevaluable event [None]
  - Rash erythematous [None]
